FAERS Safety Report 8454712-3 (Version None)
Quarter: 2012Q2

REPORT INFORMATION
  Report Type: 
  Country: None (occurrence: None)
  Receive Date: 20120615
  Receipt Date: 20120615
  Transmission Date: 20120825
  Serious: Yes (Hospitalization)
  Sender: FDA-Public Use
  Company Number: None

PATIENT
  Age: 66 Year
  Sex: Female

DRUGS (8)
  1. REVLIMID [Suspect]
     Indication: MULTIPLE MYELOMA
     Dosage: 20MG QDX21D ORALLY
     Route: 048
     Dates: start: 20120101, end: 20120501
  2. DECADRON [Concomitant]
  3. VALACYCLOVIR HYDROCHLORIDE [Concomitant]
  4. BIAXIN [Concomitant]
  5. NEURONTIN [Concomitant]
  6. PENICILLIN VK [Concomitant]
  7. TYLENOL W/ CODEINE NO. 3 [Concomitant]
  8. LASIX [Concomitant]

REACTIONS (1)
  - THROMBOCYTOPENIA [None]
